FAERS Safety Report 7892812-7 (Version None)
Quarter: 2011Q4

REPORT INFORMATION
  Report Type: 
  Country: None (occurrence: None)
  Receive Date: 20111104
  Receipt Date: 20111026
  Transmission Date: 20120403
  Serious: Yes (Hospitalization, Other)
  Sender: FDA-Public Use
  Company Number: BR-NOVOPROD-334502

PATIENT

DRUGS (3)
  1. VICTOZA [Suspect]
     Indication: TYPE 2 DIABETES MELLITUS
     Dosage: 1.2 MG, QD
     Route: 058
     Dates: start: 20110602
  2. VICTOZA [Suspect]
     Dosage: UNK
     Route: 058
     Dates: start: 20110905
  3. COUMADIN [Concomitant]
     Indication: EMBOLISM

REACTIONS (4)
  - NAUSEA [None]
  - PULMONARY EMBOLISM [None]
  - BLOOD GLUCOSE INCREASED [None]
  - HEADACHE [None]
